FAERS Safety Report 19510300 (Version 2)
Quarter: 2021Q3

REPORT INFORMATION
  Report Type: Spontaneous
  Country: NL (occurrence: NL)
  Receive Date: 20210709
  Receipt Date: 20210716
  Transmission Date: 20211014
  Serious: Yes (Life-Threatening)
  Sender: FDA-Public Use
  Company Number: NL-TEVA-2021-NL-1930177

PATIENT
  Sex: Female
  Weight: 65 kg

DRUGS (2)
  1. CIPROFLOXACINE TABLET 500MG / BRAND NAME NOT SPECIFIED [Suspect]
     Active Substance: CIPROFLOXACIN
     Indication: URINARY TRACT INFECTION
     Dosage: 1000 MILLIGRAM DAILY; 2X DAILY 500MG, THERAPY END DATE: ASKU
     Route: 065
     Dates: start: 20210612
  2. CIPROFLOXACINE TABLET 500MG / BRAND NAME NOT SPECIFIED [Suspect]
     Active Substance: CIPROFLOXACIN
     Dosage: 500 MILLIGRAM DAILY; THERAPY START DATE: ASKU
     Route: 065
     Dates: end: 20210617

REACTIONS (1)
  - Acute kidney injury [Recovered/Resolved]
